FAERS Safety Report 7332240-6 (Version None)
Quarter: 2011Q1

REPORT INFORMATION
  Report Type: 
  Country: None (occurrence: None)
  Receive Date: 20110304
  Receipt Date: 20110222
  Transmission Date: 20110831
  Serious: No
  Sender: FDA-Public Use
  Company Number: US-JNJFOC-20101108555

PATIENT
  Sex: Female

DRUGS (16)
  1. INDERAL LA [Concomitant]
     Indication: BLOOD PRESSURE ABNORMAL
     Route: 048
  2. PROTONIX [Concomitant]
     Indication: PROPHYLAXIS AGAINST GASTROINTESTINAL ULCER
     Route: 048
  3. HUMALOG [Concomitant]
     Indication: DIABETES MELLITUS
     Route: 058
  4. LORTAB [Concomitant]
     Indication: MIGRAINE
     Route: 048
  5. TRILIPIX [Concomitant]
     Indication: BLOOD TRIGLYCERIDES INCREASED
     Route: 048
  6. VALIUM [Concomitant]
     Indication: ANXIETY
     Route: 048
  7. METFORMIN HCL [Concomitant]
     Indication: DIABETES MELLITUS
     Route: 048
  8. INVEGA SUSTENNA [Suspect]
     Indication: SCHIZOPHRENIA
     Route: 030
  9. CRESTOR [Concomitant]
     Indication: BLOOD CHOLESTEROL ABNORMAL
     Route: 048
  10. LANTUS [Concomitant]
     Indication: DIABETES MELLITUS
     Route: 058
  11. ZOFRAN [Concomitant]
     Indication: NAUSEA
     Route: 048
  12. LEXAPRO [Concomitant]
     Indication: DEPRESSION
     Route: 048
  13. TEGRETOL-XR [Concomitant]
     Indication: PRODUCT USED FOR UNKNOWN INDICATION
     Route: 048
  14. ELAVIL [Concomitant]
     Indication: SLEEP DISORDER
     Route: 048
  15. HALDOL [Concomitant]
     Indication: SCHIZOPHRENIA
     Route: 048
  16. WARFARIN [Concomitant]
     Indication: THROMBOSIS
     Route: 048

REACTIONS (4)
  - ARTHRALGIA [None]
  - ABDOMINAL PAIN UPPER [None]
  - WEIGHT INCREASED [None]
  - MUSCLE SPASMS [None]
